FAERS Safety Report 10497080 (Version 1)
Quarter: 2014Q4

REPORT INFORMATION
  Report Type: Spontaneous
  Country: CA (occurrence: CA)
  Receive Date: 20141006
  Receipt Date: 20141006
  Transmission Date: 20150528
  Serious: Yes (Hospitalization)
  Sender: FDA-Public Use
  Company Number: CA-AUROBINDO-AUR-APL-2014-10495

PATIENT
  Age: 64 Year
  Sex: Male

DRUGS (2)
  1. DONEPEZIL [Suspect]
     Active Substance: DONEPEZIL
     Indication: PRODUCT USED FOR UNKNOWN INDICATION
     Route: 065
  2. ARTHROTEC [Concomitant]
     Active Substance: DICLOFENAC SODIUM\MISOPROSTOL
     Indication: OSTEOARTHRITIS
     Dosage: 50 MG, 2-3 TIMES DAILY
     Route: 065

REACTIONS (14)
  - Irritability [Recovered/Resolved]
  - Mental status changes [Recovered/Resolved]
  - Mania [Recovered/Resolved]
  - Psychomotor hyperactivity [Recovered/Resolved]
  - Energy increased [Recovered/Resolved]
  - Elevated mood [Recovered/Resolved]
  - Grandiosity [Recovered/Resolved]
  - Aggression [Recovered/Resolved]
  - Agitation [Recovered/Resolved]
  - Affect lability [Recovered/Resolved]
  - Sleep disorder [Recovered/Resolved]
  - Pressure of speech [Recovered/Resolved]
  - Flight of ideas [Recovered/Resolved]
  - Drug administration error [Recovered/Resolved]
